FAERS Safety Report 23217920 (Version 1)
Quarter: 2023Q4

REPORT INFORMATION
  Report Type: Spontaneous
  Country: US (occurrence: None)
  Receive Date: 20231121
  Receipt Date: 20231121
  Transmission Date: 20240109
  Serious: No
  Sender: FDA-Public Use
  Company Number: None

PATIENT
  Sex: Female

DRUGS (3)
  1. ICATIBANT ACETATE [Suspect]
     Active Substance: ICATIBANT ACETATE
     Indication: Complement deficiency disease
     Dosage: FREQUENCY : AS NEEDED;?
     Route: 058
     Dates: start: 202209
  2. RUCONEST [Concomitant]
  3. TAKHZYRO [Concomitant]

REACTIONS (5)
  - Memory impairment [None]
  - Pharyngeal disorder [None]
  - Gastrointestinal disorder [None]
  - Musculoskeletal disorder [None]
  - Unevaluable event [None]

NARRATIVE: CASE EVENT DATE: 20231111
